FAERS Safety Report 5448545-X (Version None)
Quarter: 2007Q3

REPORT INFORMATION
  Report Type: 
  Country: None (occurrence: None)
  Receive Date: 20070911
  Receipt Date: 20070904
  Transmission Date: 20080115
  Serious: Yes (Hospitalization)
  Sender: FDA-Public Use
  Company Number: US-ELI_LILLY_AND_COMPANY-US200708003133

PATIENT
  Age: 79 Year
  Sex: Male

DRUGS (4)
  1. HUMULIN N [Suspect]
     Indication: DIABETES MELLITUS
  2. HUMULIN R [Suspect]
     Indication: DIABETES MELLITUS
  3. LEXAPRO [Concomitant]
     Dosage: 30 MG, DAILY (1/D)
  4. TIMOPTIC [Concomitant]
     Indication: GLAUCOMA
     Dosage: UNK, DAILY (1/D)

REACTIONS (5)
  - BENIGN PROSTATIC HYPERPLASIA [None]
  - BLOOD GLUCOSE INCREASED [None]
  - DRUG INEFFECTIVE [None]
  - GLAUCOMA [None]
  - NEUROPATHY [None]
